FAERS Safety Report 6374470-6 (Version None)
Quarter: 2009Q3

REPORT INFORMATION
  Report Type: 
  Country: None (occurrence: None)
  Receive Date: 20090921
  Receipt Date: 20090910
  Transmission Date: 20100115
  Serious: Yes (Death, Hospitalization)
  Sender: FDA-Public Use
  Company Number: 2008AL010862

PATIENT
  Sex: Female

DRUGS (17)
  1. DIGOXIN [Suspect]
     Dosage: 0.125MG, DAILY, PO
     Route: 048
  2. METOLAZONE [Concomitant]
  3. LOVASTATIN [Concomitant]
  4. HYDRALAZINE [Concomitant]
  5. FUROSEMIDE [Concomitant]
  6. SPIRONOLACTONE [Concomitant]
  7. RHINOCORT [Concomitant]
  8. METOPROLOL [Concomitant]
  9. ALBUTEROL [Concomitant]
  10. METOLAZONE [Concomitant]
  11. ISOSORBIDE [Concomitant]
  12. HYDRALAZINE [Concomitant]
  13. ASPIRIN [Concomitant]
  14. NEXIUM [Concomitant]
  15. PREDNISOLONE` [Concomitant]
  16. COLCHICINE [Concomitant]
  17. COZAAR [Concomitant]

REACTIONS (12)
  - ANXIETY [None]
  - ASTHMA [None]
  - CARDIAC FAILURE CONGESTIVE [None]
  - CARDIOMYOPATHY [None]
  - ECONOMIC PROBLEM [None]
  - EJECTION FRACTION DECREASED [None]
  - GENERALISED OEDEMA [None]
  - HYPERCHOLESTEROLAEMIA [None]
  - HYPERTENSION [None]
  - MULTIPLE INJURIES [None]
  - PAIN [None]
  - RENAL FAILURE [None]
